FAERS Safety Report 7000811-2 (Version None)
Quarter: 2010Q3

REPORT INFORMATION
  Report Type: 
  Country: None (occurrence: None)
  Receive Date: 20100920
  Receipt Date: 20100315
  Transmission Date: 20110219
  Serious: No
  Sender: FDA-Public Use
  Company Number: US-ASTRAZENECA-2010SE11361

PATIENT
  Sex: Female
  Weight: 52.2 kg

DRUGS (3)
  1. SEROQUEL XR [Suspect]
     Indication: BIPOLAR DISORDER
     Route: 048
     Dates: start: 20090801
  2. CELEXA [Concomitant]
  3. AMITRIPTYLINE [Concomitant]

REACTIONS (2)
  - DRUG DOSE OMISSION [None]
  - MALAISE [None]
